FAERS Safety Report 14613240 (Version 1)
Quarter: 2018Q1

REPORT INFORMATION
  Report Type: Spontaneous
  Country: US (occurrence: US)
  Receive Date: 20180308
  Receipt Date: 20180308
  Transmission Date: 20180509
  Serious: Yes (Death, Other)
  Sender: FDA-Public Use
  Company Number: PHHY2018US030289

PATIENT
  Sex: Female

DRUGS (9)
  1. DEXTROSE. [Concomitant]
     Active Substance: DEXTROSE
     Indication: FOETAL EXPOSURE DURING PREGNANCY
     Route: 064
  2. LIDOCAINE. [Suspect]
     Active Substance: LIDOCAINE
     Indication: FOETAL EXPOSURE DURING PREGNANCY
     Dosage: MATERNAL DOSE: 10 ML
     Route: 064
  3. FENTANYL. [Suspect]
     Active Substance: FENTANYL
     Indication: FOETAL EXPOSURE DURING PREGNANCY
     Dosage: MATERNAL DOSE: 25 UG
     Route: 064
  4. DEXMEDETOMIDINE. [Suspect]
     Active Substance: DEXMEDETOMIDINE
     Dosage: MATERNAL DOSE: 1.2 UG/KG
     Route: 064
  5. NITRIC OXIDE. [Concomitant]
     Active Substance: NITRIC OXIDE
     Indication: FOETAL EXPOSURE DURING PREGNANCY
     Route: 064
  6. FENTANYL. [Suspect]
     Active Substance: FENTANYL
     Dosage: MATERNAL DOSE: 100 UG
     Route: 064
  7. DEXMEDETOMIDINE. [Suspect]
     Active Substance: DEXMEDETOMIDINE
     Indication: FOETAL EXPOSURE DURING PREGNANCY
     Dosage: MATERNAL DOSE: 0.5 UG
     Route: 064
  8. SEVOFLURANE. [Concomitant]
     Active Substance: SEVOFLURANE
     Indication: FOETAL EXPOSURE DURING PREGNANCY
     Route: 064
  9. EPINEPHRINE. [Suspect]
     Active Substance: EPINEPHRINE
     Indication: FOETAL EXPOSURE DURING PREGNANCY
     Dosage: MATERNAL DOSE: 2 MG
     Route: 064

REACTIONS (6)
  - Hypoxia [Fatal]
  - Neonatal respiratory distress syndrome [Fatal]
  - Shock [Unknown]
  - Bradycardia [Unknown]
  - Premature baby [Unknown]
  - Foetal exposure during pregnancy [Unknown]
